FAERS Safety Report 23771202 (Version 1)
Quarter: 2024Q2

REPORT INFORMATION
  Report Type: Spontaneous
  Country: US (occurrence: US)
  Receive Date: 20240423
  Receipt Date: 20240423
  Transmission Date: 20240715
  Serious: Yes (Other)
  Sender: FDA-Public Use
  Company Number: US-Accord-355744

PATIENT
  Age: 63 Year
  Sex: Female
  Weight: 85.73 kg

DRUGS (4)
  1. SIMVASTATIN [Suspect]
     Active Substance: SIMVASTATIN
     Indication: Blood cholesterol
     Dosage: STRENGTH: 40 MG, ONCE DAILY
     Route: 048
  2. GABAPENTIN [Concomitant]
     Active Substance: GABAPENTIN
     Indication: Neuropathy peripheral
     Dosage: DECREASED FROM 100 MG TWICE?DAILY TO 100 MG ONCE DAILY AROUND THE END OF FEB-2023
  3. PHENOBARBITAL [Concomitant]
     Active Substance: PHENOBARBITAL
     Indication: Epilepsy
     Dosage: DAILY
  4. VITAMIN B12 [Concomitant]
     Active Substance: CYANOCOBALAMIN
     Dosage: SHOTS MONTHLY DUE TO LOSING WEIGHT
     Dates: start: 2021

REACTIONS (5)
  - Neuropathy peripheral [Unknown]
  - Weight decreased [Unknown]
  - Meniscus injury [Unknown]
  - Fall [Unknown]
  - Frequent bowel movements [Unknown]

NARRATIVE: CASE EVENT DATE: 20200101
